FAERS Safety Report 12716299 (Version 1)
Quarter: 2016Q3

REPORT INFORMATION
  Report Type: Report from Study
  Country: IN (occurrence: IN)
  Receive Date: 20160906
  Receipt Date: 20160906
  Transmission Date: 20161109
  Serious: Yes (Hospitalization)
  Sender: FDA-Public Use
  Company Number: PHHO2016IN012595

PATIENT
  Age: 26 Year
  Sex: Male
  Weight: 62 kg

DRUGS (7)
  1. METFORMIN [Suspect]
     Active Substance: METFORMIN HYDROCHLORIDE
     Indication: PITUITARY-DEPENDENT CUSHING^S SYNDROME
     Dosage: 500 MG, BID
     Route: 065
  2. ASPIRIN//ACETYLSALICYLIC ACID [Concomitant]
     Active Substance: ASPIRIN
     Indication: PROPHYLAXIS
     Dosage: 75 MG, UNK
     Route: 065
     Dates: start: 20160809
  3. METFORMIN [Suspect]
     Active Substance: METFORMIN HYDROCHLORIDE
     Indication: DIABETES MELLITUS
     Dosage: 2000 MG, BID
     Route: 065
     Dates: start: 20160826
  4. ENALAPRIL [Concomitant]
     Active Substance: ENALAPRIL
     Indication: SECONDARY HYPERTENSION
     Dosage: 10-0-5 MG
     Route: 065
     Dates: start: 20160809
  5. SOM230 [Suspect]
     Active Substance: PASIREOTIDE
     Indication: PITUITARY-DEPENDENT CUSHING^S SYNDROME
     Dosage: 0.6 MG, BID
     Route: 058
     Dates: start: 20160819, end: 20160824
  6. KETOCONAZOL [Concomitant]
     Active Substance: KETOCONAZOLE
     Indication: PRODUCT USED FOR UNKNOWN INDICATION
     Route: 065
  7. SOM230 [Suspect]
     Active Substance: PASIREOTIDE
     Dosage: 0.6 MG, UNK (AT EVENING)
     Route: 058
     Dates: start: 20160826

REACTIONS (3)
  - Diarrhoea [Recovered/Resolved]
  - Hyperglycaemia [Recovering/Resolving]
  - Fatigue [Recovered/Resolved]

NARRATIVE: CASE EVENT DATE: 20160820
